FAERS Safety Report 8798793 (Version 1)
Quarter: 2012Q4

REPORT INFORMATION
  Report Type: Spontaneous
  Country: US (occurrence: None)
  Receive Date: 20120914
  Receipt Date: 20120914
  Transmission Date: 20130627
  Serious: Yes (Other)
  Sender: FDA-Public Use
  Company Number: 2012MA010766

PATIENT
  Age: 30 Year
  Sex: Female
  Weight: 86.18 kg

DRUGS (1)
  1. M-ZOLE COMBI PACK [Suspect]
     Route: 067
     Dates: start: 20120826, end: 20120828

REACTIONS (1)
  - Vaginal haemorrhage [None]
